FAERS Safety Report 7356265-X (Version None)
Quarter: 2011Q1

REPORT INFORMATION
  Report Type: 
  Country: None (occurrence: None)
  Receive Date: 20110316
  Receipt Date: 20110218
  Transmission Date: 20110831
  Serious: No
  Sender: FDA-Public Use
  Company Number: US-B.I. PHARMACEUTICALS,INC./RIDGEFIELD-2011-BP-06103BP

PATIENT
  Sex: Female

DRUGS (10)
  1. FLECAINIDE ACETATE [Concomitant]
     Indication: ATRIAL FIBRILLATION
     Dosage: 200 MG
  2. DIGOXIN [Concomitant]
     Indication: ATRIAL FIBRILLATION
  3. CITRACAL [Concomitant]
     Indication: OSTEOPOROSIS
  4. MULTIVITAMIN [Concomitant]
     Indication: PROPHYLAXIS
  5. ASPIRIN [Concomitant]
     Indication: PROPHYLAXIS
     Dosage: 81 MG
  6. LOSARTAN [Concomitant]
     Indication: HYPERTENSION
  7. ARIMIDEX [Concomitant]
     Indication: GASTRIC CANCER
  8. PRADAXA [Suspect]
     Indication: ATRIAL FIBRILLATION
     Dosage: 300 MG
     Route: 048
     Dates: start: 20110216
  9. ATENOLOL [Concomitant]
     Indication: HYPERTENSION
     Dosage: 50 MG
  10. ALENDRONATE SODIUM [Concomitant]
     Indication: OSTEOPOROSIS

REACTIONS (2)
  - CHEST PAIN [None]
  - ODYNOPHAGIA [None]
